FAERS Safety Report 7421305-6 (Version None)
Quarter: 2011Q2

REPORT INFORMATION
  Report Type: 
  Country: None (occurrence: None)
  Receive Date: 20110418
  Receipt Date: 20110404
  Transmission Date: 20111010
  Serious: Yes (Hospitalization)
  Sender: FDA-Public Use
  Company Number: CA-JNJFOC-20110402627

PATIENT
  Sex: Female
  Weight: 69.6 kg

DRUGS (5)
  1. MTX [Concomitant]
     Route: 048
  2. ACLASTA [Concomitant]
     Indication: OSTEOPOROSIS
     Route: 042
  3. REMICADE [Suspect]
     Dosage: 65TH INFUSION
     Route: 042
  4. REMICADE [Suspect]
     Indication: RHEUMATOID ARTHRITIS
     Route: 042
  5. SYNTHROID [Concomitant]
     Indication: HYPOTHYROIDISM
     Route: 048

REACTIONS (2)
  - FOOT DEFORMITY [None]
  - BUNION OPERATION [None]
